FAERS Safety Report 20777698 (Version 1)
Quarter: 2022Q2

REPORT INFORMATION
  Report Type: Spontaneous
  Country: US (occurrence: US)
  Receive Date: 20220503
  Receipt Date: 20220503
  Transmission Date: 20220721
  Serious: Yes (Hospitalization, Other)
  Sender: FDA-Public Use
  Company Number: US-AMNEAL PHARMACEUTICALS-2022-AMRX-01162

PATIENT
  Sex: Male
  Weight: 85.73 kg

DRUGS (8)
  1. PREDNISONE [Suspect]
     Active Substance: PREDNISONE
     Indication: Product used for unknown indication
     Dosage: UNK
     Route: 048
  2. XELJANZ [Suspect]
     Active Substance: TOFACITINIB CITRATE
     Indication: Colitis ulcerative
     Dosage: 2 /DAY, 5MG
     Route: 065
     Dates: start: 2019
  3. DILTIAZEM HYDROCHLORIDE [Suspect]
     Active Substance: DILTIAZEM HYDROCHLORIDE
     Indication: Product used for unknown indication
     Dosage: 240MG, UNK
     Route: 065
     Dates: start: 202112
  4. DILTIAZEM HYDROCHLORIDE [Suspect]
     Active Substance: DILTIAZEM HYDROCHLORIDE
     Dosage: 180MG, UNK
     Route: 065
  5. DILTIAZEM HYDROCHLORIDE [Suspect]
     Active Substance: DILTIAZEM HYDROCHLORIDE
     Dosage: 360MG, UNK
     Route: 065
  6. LEVOTHYROXINE [Concomitant]
     Active Substance: LEVOTHYROXINE
     Indication: Hypothyroidism
     Dosage: UNK, 50MCG
     Route: 065
  7. TAMSULOSIN [Concomitant]
     Active Substance: TAMSULOSIN
     Indication: Prostatomegaly
     Dosage: 0.4 MILLIGRAM, 1 /DAY
     Route: 065
  8. FINASTERIDE [Concomitant]
     Active Substance: FINASTERIDE
     Indication: Prostatomegaly
     Dosage: 5 MILLIGRAM,
     Route: 065

REACTIONS (11)
  - COVID-19 pneumonia [Unknown]
  - Malignant melanoma [Unknown]
  - Renal cell carcinoma [Unknown]
  - Basal cell carcinoma [Unknown]
  - Sensitive skin [Recovered/Resolved]
  - Renal cyst [Unknown]
  - Colitis [Unknown]
  - Constipation [Recovered/Resolved]
  - Diarrhoea [Recovered/Resolved]
  - Malaise [Recovered/Resolved]
  - Colitis ulcerative [Recovered/Resolved]

NARRATIVE: CASE EVENT DATE: 20200101
